FAERS Safety Report 5850898-5 (Version None)
Quarter: 2008Q3

REPORT INFORMATION
  Report Type: 
  Country: None (occurrence: None)
  Receive Date: 20080819
  Receipt Date: 20080819
  Transmission Date: 20090109
  Serious: No
  Sender: FDA-Public Use
  Company Number: None

PATIENT
  Age: 63 Year
  Sex: Female
  Weight: 69.8539 kg

DRUGS (1)
  1. ACTONEL [Suspect]
     Indication: OSTEOPOROSIS
     Dosage: 35 MG WEEKLU PO
     Route: 048
     Dates: start: 20080728, end: 20080818

REACTIONS (2)
  - ABDOMINAL PAIN UPPER [None]
  - DRUG EFFECT DECREASED [None]
